FAERS Safety Report 5254399-7 (Version None)
Quarter: 2007Q1

REPORT INFORMATION
  Report Type: 
  Country: None (occurrence: None)
  Receive Date: 20070302
  Receipt Date: 20070221
  Transmission Date: 20070707
  Serious: Yes (Hospitalization)
  Sender: FDA-Public Use
  Company Number: JP-ABBOTT-07P-087-0358084-00

PATIENT
  Sex: Female
  Weight: 32 kg

DRUGS (7)
  1. KLARICID DRY SYRUP [Suspect]
     Indication: PNEUMONIA MYCOPLASMAL
     Route: 048
     Dates: start: 20070115, end: 20070120
  2. KLARICID DRY SYRUP [Suspect]
     Indication: COUGH
  3. KLARICID DRY SYRUP [Suspect]
     Indication: PYREXIA
  4. HOKUNALIN TAPE [Suspect]
     Indication: COUGH
     Route: 062
     Dates: start: 20070115, end: 20070120
  5. COMBINATION COLD REMEDY (PL) [Suspect]
     Indication: COUGH
     Route: 048
     Dates: start: 20070115, end: 20070120
  6. COMBINATION COLD REMEDY (PL) [Suspect]
     Indication: PYREXIA
  7. LACTOBACILLUS SPOROGENES [Concomitant]
     Indication: DIARRHOEA
     Route: 048
     Dates: start: 20070118

REACTIONS (8)
  - CONJUNCTIVAL HYPERAEMIA [None]
  - COUGH [None]
  - DIARRHOEA [None]
  - DRUG ERUPTION [None]
  - HEPATIC FUNCTION ABNORMAL [None]
  - HYPERSENSITIVITY [None]
  - PRURITUS [None]
  - PYREXIA [None]
